FAERS Safety Report 7132391-5 (Version None)
Quarter: 2010Q4

REPORT INFORMATION
  Report Type: 
  Country: None (occurrence: None)
  Receive Date: 20101202
  Receipt Date: 20101129
  Transmission Date: 20110411
  Serious: Yes (Hospitalization)
  Sender: FDA-Public Use
  Company Number: DE-SANOFI-AVENTIS-2010SA071968

PATIENT
  Age: 68 Year
  Sex: Female
  Weight: 46 kg

DRUGS (11)
  1. DOCETAXEL [Suspect]
     Indication: HYPOPHARYNGEAL CANCER
     Route: 041
     Dates: start: 20101006, end: 20101006
  2. DOCETAXEL [Suspect]
     Route: 041
  3. CETUXIMAB [Suspect]
     Indication: HYPOPHARYNGEAL CANCER
     Route: 041
     Dates: start: 20101006, end: 20101006
  4. CETUXIMAB [Suspect]
     Route: 041
  5. CISPLATIN [Suspect]
     Indication: HYPOPHARYNGEAL CANCER
     Route: 041
     Dates: start: 20101006, end: 20101006
  6. CISPLATIN [Suspect]
     Route: 041
     Dates: start: 20101006, end: 20101006
  7. TAVANIC [Concomitant]
     Dosage: 1-0-0
     Route: 048
  8. AMARYL [Concomitant]
     Dosage: 1-0-0
     Route: 048
  9. AMLODIPINE [Concomitant]
     Dosage: 1-0-0
     Route: 048
  10. METFORMIN [Concomitant]
     Dosage: 1-1-1
     Route: 048
  11. FRAXIPARIN [Concomitant]
     Dosage: 0-0-1
     Route: 058

REACTIONS (1)
  - HYPOMAGNESAEMIA [None]
